FAERS Safety Report 7557467-X (Version None)
Quarter: 2011Q2

REPORT INFORMATION
  Report Type: 
  Country: None (occurrence: None)
  Receive Date: 20110620
  Receipt Date: 20110606
  Transmission Date: 20111010
  Serious: Yes (Other)
  Sender: FDA-Public Use
  Company Number: US-ROCHE-781471

PATIENT
  Sex: Male
  Weight: 97.2 kg

DRUGS (6)
  1. CAPECITABINE [Suspect]
     Indication: BRAIN STEM GLIOMA
     Dosage: DATE OF LAST DOSE PRIOR TO SAE: 25 APR 2011
     Route: 048
     Dates: start: 20110228, end: 20110513
  2. DECADRON [Concomitant]
     Dates: start: 20110425
  3. ONDANSETRON [Concomitant]
     Dates: start: 20110309
  4. PRILOSEC [Concomitant]
     Dates: start: 20110305
  5. PHENERGAN HCL [Concomitant]
     Dates: start: 20110309
  6. DECADRON [Concomitant]
     Dates: start: 20110422, end: 20110425

REACTIONS (1)
  - NECROSIS [None]
